FAERS Safety Report 17125381 (Version 2)
Quarter: 2020Q1

REPORT INFORMATION
  Report Type: Spontaneous
  Country: DE (occurrence: DE)
  Receive Date: 20191207
  Receipt Date: 20200101
  Transmission Date: 20200409
  Serious: Yes (Other)
  Sender: FDA-Public Use
  Company Number: DE-AUROBINDO-AUR-APL-2019-103919

PATIENT
  Age: 82 Year
  Sex: Female

DRUGS (13)
  1. MIRTAZAPINE. [Suspect]
     Active Substance: MIRTAZAPINE
     Dosage: 30 MILLIGRAM, ONCE A DAY
     Route: 065
     Dates: start: 20180503, end: 20180509
  2. MIRTAZAPINE. [Suspect]
     Active Substance: MIRTAZAPINE
     Dosage: 45 MILLIGRAM, ONCE A DAY
     Route: 065
     Dates: start: 20180509, end: 20180509
  3. RISPERDAL [Suspect]
     Active Substance: RISPERIDONE
     Dosage: 2 MILLIGRAM (VARING DOSES FROM 2-3 MG/DAY)
     Route: 048
     Dates: start: 20180425
  4. SOLIFENACIN [Suspect]
     Active Substance: SOLIFENACIN
     Indication: PSYCHOTIC DISORDER
     Dosage: 50 MILLIGRAM, ONCE A DAY
     Route: 065
     Dates: start: 20180319
  5. RAMIPRIL. [Concomitant]
     Active Substance: RAMIPRIL
     Indication: HYPERTONIA
     Dosage: 10 MILLIGRAM, ONCE A DAY
     Route: 065
  6. BISOPROLOL [Concomitant]
     Active Substance: BISOPROLOL
     Indication: PRODUCT USED FOR UNKNOWN INDICATION
     Dosage: 5 MILLIGRAM, ONCE A DAY
     Route: 065
     Dates: start: 20180501
  7. MIRTAZAPINE. [Suspect]
     Active Substance: MIRTAZAPINE
     Dosage: 30 MILLIGRAM, ONCE A DAY
     Route: 065
     Dates: start: 20180510, end: 20180510
  8. SOLIFENACIN [Suspect]
     Active Substance: SOLIFENACIN
     Dosage: 2.5 MILLIGRAM, ONCE A DAY
     Route: 065
     Dates: start: 20180519
  9. MIRTAZAPINE. [Suspect]
     Active Substance: MIRTAZAPINE
     Indication: PSYCHOTIC DISORDER
     Dosage: 15 MILLIGRAM, ONCE A DAY
     Route: 065
     Dates: start: 20180427, end: 20180502
  10. SOLIFENACIN [Suspect]
     Active Substance: SOLIFENACIN
     Indication: HYPERTONIC BLADDER
     Dosage: 2.5 MILLIGRAM, ONCE A DAY
     Route: 065
     Dates: start: 20180320, end: 20180509
  11. RISPERDAL [Suspect]
     Active Substance: RISPERIDONE
     Dosage: VARING DOSES FROM 2-3 MG/DAY 3 MILLIGRAM, ONCE A DAY
     Route: 048
     Dates: start: 20180405
  12. RISPERDAL [Suspect]
     Active Substance: RISPERIDONE
     Indication: PSYCHOTIC DISORDER
     Dosage: 2 MILLIGRAM, ONCE A DAY
     Route: 048
     Dates: start: 20180319
  13. DORZOLAMIDE [Concomitant]
     Active Substance: DORZOLAMIDE
     Indication: GLAUCOMA
     Dosage: UNK
     Route: 065

REACTIONS (1)
  - Urinary retention [Recovered/Resolved]

NARRATIVE: CASE EVENT DATE: 20180509
